FAERS Safety Report 7105974-6 (Version None)
Quarter: 2010Q4

REPORT INFORMATION
  Report Type: 
  Country: None (occurrence: None)
  Receive Date: 20101116
  Receipt Date: 20101105
  Transmission Date: 20110411
  Serious: Yes (Hospitalization)
  Sender: FDA-Public Use
  Company Number: US-JNJFOC-20100904005

PATIENT
  Sex: Female
  Weight: 55.88 kg

DRUGS (8)
  1. REMICADE [Suspect]
     Indication: CROHN'S DISEASE
     Route: 042
  2. MESALAMINE [Concomitant]
     Route: 048
  3. PREVACID [Concomitant]
  4. ANTIBIOTICS [Concomitant]
     Indication: INFLAMMATORY BOWEL DISEASE
  5. PREDNISONE [Concomitant]
  6. MIRALAX [Concomitant]
  7. VITAMIN TAB [Concomitant]
  8. CALCIUM [Concomitant]

REACTIONS (1)
  - CROHN'S DISEASE [None]
